FAERS Safety Report 7469007 (Version 13)
Quarter: 2013Q4

REPORT INFORMATION
  Report Type: Report from Study
  Country: US (occurrence: US)
  Receive Date: 20100713
  Receipt Date: 20131106
  Transmission Date: 20140711
  Serious: Yes (Death, Other)
  Sender: FDA-Public Use
  Company Number: US-JNJFOC-20100701863

PATIENT
  Age: 52 Year
  Sex: Male
  Weight: 66.23 kg

DRUGS (21)
  1. SIMPONI [Suspect]
     Indication: RHEUMATOID ARTHRITIS
     Route: 058
     Dates: start: 20101004
  2. SIMPONI [Suspect]
     Indication: RHEUMATOID ARTHRITIS
     Route: 058
     Dates: start: 20090520, end: 201005
  3. REMICADE [Suspect]
     Indication: RHEUMATOID ARTHRITIS
     Route: 042
  4. BLEOMYCIN [Suspect]
     Indication: HODGKIN^S DISEASE
     Dates: start: 20110404, end: 20110818
  5. LORTAB [Concomitant]
     Indication: PAIN
     Dosage: 7.5/500
  6. TRAZODONE [Concomitant]
     Indication: SLEEP DISORDER
  7. PEGFILGRASTIM [Concomitant]
     Indication: LEUKOPENIA
     Dates: start: 201103
  8. XANAX [Concomitant]
  9. ZOFRAN [Concomitant]
  10. CELEXA [Concomitant]
  11. PROTONIX [Concomitant]
  12. LEVAQUIN [Concomitant]
     Indication: PYREXIA
  13. MAGNESIUM OXIDE [Concomitant]
     Route: 048
  14. POTASSIUM CHLORIDE [Concomitant]
  15. PREDNISONE [Concomitant]
  16. PHENERGAN [Concomitant]
  17. SOLU-MEDROL [Concomitant]
  18. LOMOTIL [Concomitant]
  19. MAGIC MOUTHWASH [Concomitant]
  20. TAMIFLU [Concomitant]
  21. PROCRIT [Concomitant]

REACTIONS (5)
  - Hodgkin^s disease [Fatal]
  - Acute respiratory distress syndrome [Fatal]
  - Interstitial lung disease [Fatal]
  - Cholelithiasis [Recovered/Resolved]
  - Diarrhoea infectious [Recovered/Resolved]
